FAERS Safety Report 5372796-6 (Version None)
Quarter: 2007Q2

REPORT INFORMATION
  Report Type: 
  Country: None (occurrence: None)
  Receive Date: 20070619
  Receipt Date: 20061031
  Transmission Date: 20071010
  Serious: Yes (Other)
  Sender: FDA-Public Use
  Company Number: 2006127961

PATIENT
  Sex: Female

DRUGS (2)
  1. ESTRING [Suspect]
     Indication: ATROPHIC VULVOVAGINITIS
     Dosage: VAGINAL
     Route: 067
  2. ESTRING [Suspect]
     Indication: POSTMENOPAUSE
     Dosage: VAGINAL
     Route: 067

REACTIONS (2)
  - DRUG INEFFECTIVE [None]
  - VAGINAL INFECTION [None]
